FAERS Safety Report 9593327 (Version 2)
Quarter: 2013Q4

REPORT INFORMATION
  Report Type: Spontaneous
  Country: US (occurrence: US)
  Receive Date: 20131004
  Receipt Date: 20131004
  Transmission Date: 20140711
  Serious: No
  Sender: FDA-Public Use
  Company Number: US-PURDUE-USA-2012-0084808

PATIENT
  Age: 62 Year
  Sex: Male

DRUGS (2)
  1. BUTRANS [Suspect]
     Indication: BACK PAIN
     Dosage: 10 MCG/HR, UNK
     Route: 062
     Dates: start: 20120316
  2. BUTRANS [Suspect]
     Indication: ARTHRALGIA
     Dosage: 20 MCG/HR, UNK
     Route: 062
     Dates: start: 20120301, end: 20120315

REACTIONS (3)
  - Feeling abnormal [Recovered/Resolved]
  - Dyspnoea [Not Recovered/Not Resolved]
  - Product adhesion issue [Unknown]
